FAERS Safety Report 6805061-8 (Version None)
Quarter: 2010Q2

REPORT INFORMATION
  Report Type: 
  Country: None (occurrence: None)
  Receive Date: 20100628
  Receipt Date: 20070822
  Transmission Date: 20101027
  Serious: No
  Sender: FDA-Public Use
  Company Number: US-PFIZER INC-2007070111

PATIENT
  Sex: Female
  Weight: 84.37 kg

DRUGS (4)
  1. GEODON [Suspect]
     Indication: BIPOLAR I DISORDER
     Dates: start: 20070803
  2. KLONOPIN [Concomitant]
  3. LEXAPRO [Concomitant]
  4. OTHER HYPNOTICS AND SEDATIVES [Concomitant]

REACTIONS (1)
  - SOMNOLENCE [None]
